FAERS Safety Report 5377666-5 (Version None)
Quarter: 2007Q3

REPORT INFORMATION
  Report Type: 
  Country: None (occurrence: None)
  Receive Date: 20070703
  Receipt Date: 20070622
  Transmission Date: 20080115
  Serious: Yes (Death, Hospitalization)
  Sender: FDA-Public Use
  Company Number: MY-PFIZER INC-2007035587

PATIENT
  Sex: Female
  Weight: 50.8 kg

DRUGS (3)
  1. SU-011,248 [Suspect]
     Indication: METASTATIC RENAL CELL CARCINOMA
     Route: 048
     Dates: start: 20070201, end: 20070411
  2. ATENOLOL [Concomitant]
     Route: 048
  3. NIFEDIPINE [Concomitant]
     Route: 048

REACTIONS (1)
  - HEPATIC FAILURE [None]
